FAERS Safety Report 6936039-1 (Version None)
Quarter: 2010Q3

REPORT INFORMATION
  Report Type: 
  Country: None (occurrence: None)
  Receive Date: 20100823
  Receipt Date: 20100810
  Transmission Date: 20110219
  Serious: Yes (Other)
  Sender: FDA-Public Use
  Company Number: US-GENZYME-CLOF-1001128

PATIENT

DRUGS (3)
  1. CLOLAR [Suspect]
     Indication: HAEMATOLOGICAL MALIGNANCY
     Dosage: UNK UNK, UNK
     Route: 042
  2. MELPHALAN [Suspect]
     Indication: HAEMATOLOGICAL MALIGNANCY
     Dosage: UNK UNK, UNK
     Route: 065
  3. THIOTEPA [Suspect]
     Indication: HAEMATOLOGICAL MALIGNANCY
     Dosage: UNK UNK, UNK
     Route: 065

REACTIONS (1)
  - VENOOCCLUSIVE DISEASE [None]
